FAERS Safety Report 6663400-5 (Version None)
Quarter: 2010Q2

REPORT INFORMATION
  Report Type: 
  Country: None (occurrence: None)
  Receive Date: 20100401
  Receipt Date: 20100324
  Transmission Date: 20101027
  Serious: Yes (Other)
  Sender: FDA-Public Use
  Company Number: ES-PFIZER INC-2010038137

PATIENT
  Age: 30 Year
  Sex: Male

DRUGS (8)
  1. MARAVIROC [Suspect]
     Indication: HIV INFECTION CDC CATEGORY C3
     Dosage: UNK
     Route: 048
     Dates: start: 20090326, end: 20090429
  2. SULFADIAZINE [Concomitant]
     Indication: CEREBRAL TOXOPLASMOSIS
     Dosage: 1 G, 2X/DAY
     Dates: start: 20070801
  3. DARAPRIM [Concomitant]
     Indication: CEREBRAL TOXOPLASMOSIS
     Dosage: 25 MG, 1X/DAY
     Dates: start: 20070801
  4. DEPAKENE [Concomitant]
     Indication: CONVULSION
     Dosage: 400 MG, 3X/DAY
     Dates: start: 20081101
  5. KALETRA [Concomitant]
     Indication: HIV INFECTION CDC CATEGORY C3
     Dosage: 2 DF, 1X/DAY
     Route: 048
     Dates: start: 20081101
  6. LEDERFOLIN [Concomitant]
     Indication: CEREBRAL TOXOPLASMOSIS
     Dosage: 15 MG, 1X/DAY
     Route: 048
     Dates: start: 20070801
  7. MOTILIUM [Concomitant]
     Indication: VOMITING
     Dosage: UNK
     Route: 048
     Dates: start: 20081101
  8. TRUVADA [Concomitant]
     Indication: HIV INFECTION CDC CATEGORY C3
     Dosage: 1 DF, 1X/DAY
     Route: 048
     Dates: start: 20090301

REACTIONS (3)
  - CONDITION AGGRAVATED [None]
  - HYPERTRANSAMINASAEMIA [None]
  - RENAL FAILURE [None]
